FAERS Safety Report 5602574-1 (Version None)
Quarter: 2008Q1

REPORT INFORMATION
  Report Type: 
  Country: None (occurrence: None)
  Receive Date: 20080125
  Receipt Date: 20080114
  Transmission Date: 20080703
  Serious: Yes (Other)
  Sender: FDA-Public Use
  Company Number: DE-ROCHE-538318

PATIENT
  Age: 45 Year
  Sex: Female
  Weight: 58 kg

DRUGS (1)
  1. PEG-INTERFERON A-2A (RO 25-8310) [Suspect]
     Indication: MALIGNANT MELANOMA
     Dosage: THERAPY TEMPORARILY INTERRUPTED. FORM: SYRINGE
     Route: 058
     Dates: start: 20070810, end: 20071214

REACTIONS (1)
  - DEPRESSION [None]
